FAERS Safety Report 22277348 (Version 1)
Quarter: 2023Q2

REPORT INFORMATION
  Report Type: Spontaneous
  Country: US (occurrence: US)
  Receive Date: 20230503
  Receipt Date: 20230503
  Transmission Date: 20230722
  Serious: No
  Sender: FDA-Public Use
  Company Number: US-SA-SAC20230501001826

PATIENT
  Age: 60 Year
  Sex: Female

DRUGS (7)
  1. DUPIXENT [Suspect]
     Active Substance: DUPILUMAB
     Indication: Impetigo
     Dosage: 300 MG, QOW
     Route: 058
     Dates: start: 20230418
  2. CLOBETASOL PROPIONATE [Concomitant]
     Active Substance: CLOBETASOL PROPIONATE
     Dosage: UNK
  3. MUPIROCIN [Concomitant]
     Active Substance: MUPIROCIN
     Dosage: UNK
  4. MYRBETRIQ [Concomitant]
     Active Substance: MIRABEGRON
     Dosage: UNK
  5. PREDNISONE [Concomitant]
     Active Substance: PREDNISONE
     Dosage: UNK
  6. PROLIA [Concomitant]
     Active Substance: DENOSUMAB
     Dosage: UNK, PRN
  7. BETAMETHASONE [Concomitant]
     Active Substance: BETAMETHASONE
     Dosage: UNK

REACTIONS (6)
  - Depressed mood [Unknown]
  - Fatigue [Unknown]
  - Incontinence [Unknown]
  - Renal disorder [Unknown]
  - Dry skin [Unknown]
  - Product use in unapproved indication [Unknown]

NARRATIVE: CASE EVENT DATE: 20230401
